FAERS Safety Report 6802479-4 (Version None)
Quarter: 2010Q2

REPORT INFORMATION
  Report Type: 
  Country: None (occurrence: None)
  Receive Date: 20100628
  Receipt Date: 20100611
  Transmission Date: 20101027
  Serious: Yes (Life-Threatening)
  Sender: FDA-Public Use
  Company Number: GB-RANBAXY-2010RR-34990

PATIENT
  Age: 57 Year
  Sex: Male

DRUGS (8)
  1. DICLOFENAC SODIUM [Suspect]
     Indication: ANALGESIC THERAPY
     Dosage: 75 MG, UNK
     Route: 042
     Dates: start: 20100517
  2. FENTANYL [Suspect]
  3. MIDAZOLAM HCL [Suspect]
  4. ONDANSETRON [Suspect]
  5. DYLOJECT [Suspect]
  6. PROPOFOL [Suspect]
  7. AMLODIPINE [Concomitant]
     Indication: HYPERTENSION
     Dosage: 5 MG, UNK
     Route: 048
  8. VALSARTAN [Concomitant]
     Indication: HYPERTENSION
     Dosage: 80 MG, UNK
     Route: 048

REACTIONS (1)
  - ANAPHYLACTIC REACTION [None]
